FAERS Safety Report 24959394 (Version 1)
Quarter: 2025Q1

REPORT INFORMATION
  Report Type: Spontaneous
  Country: US (occurrence: None)
  Receive Date: 20250211
  Receipt Date: 20250211
  Transmission Date: 20250409
  Serious: Yes (Other)
  Sender: FDA-CTU
  Company Number: None

PATIENT
  Age: 50 Year
  Sex: Female

DRUGS (11)
  1. AIMOVIG [Suspect]
     Active Substance: ERENUMAB-AOOE
     Indication: Migraine
     Dosage: FREQUENCY : MONTHLY;?
     Route: 058
  2. CLONIDINE [Concomitant]
     Active Substance: CLONIDINE
  3. FUROSEMIDE [Concomitant]
     Active Substance: FUROSEMIDE
  4. HYDROXYZINE HYDROCHLORIDE [Concomitant]
     Active Substance: HYDROXYZINE HYDROCHLORIDE
  5. metoprolol ER succinate 25mg [Concomitant]
  6. mirtazepine 7.5mg [Concomitant]
  7. MONTELUKAST SODIUM [Concomitant]
     Active Substance: MONTELUKAST SODIUM
  8. nitroglycerin 0.4mg [Concomitant]
  9. ACETAMINOPHEN\OXYCODONE HYDROCHLORIDE [Concomitant]
     Active Substance: ACETAMINOPHEN\OXYCODONE HYDROCHLORIDE
  10. PANTOPRAZOLE SODIUM [Concomitant]
     Active Substance: PANTOPRAZOLE SODIUM
  11. PREGABALIN [Concomitant]
     Active Substance: PREGABALIN

REACTIONS (1)
  - Nausea [None]
